FAERS Safety Report 6010866-X (Version None)
Quarter: 2008Q4

REPORT INFORMATION
  Report Type: 
  Country: None (occurrence: None)
  Receive Date: 20081218
  Receipt Date: 20081210
  Transmission Date: 20090506
  Serious: Yes (Other)
  Sender: FDA-Public Use
  Company Number: JP-AVENTIS-200813818JP

PATIENT
  Age: 1 Year
  Sex: Female

DRUGS (3)
  1. CEFOTAXIME SODIUM [Suspect]
     Route: 042
  2. MEROPENEM [Concomitant]
     Route: 042
  3. DEXAMETHASONE [Concomitant]
     Route: 042

REACTIONS (1)
  - PANCYTOPENIA [None]
